FAERS Safety Report 12253037 (Version 1)
Quarter: 2016Q2

REPORT INFORMATION
  Report Type: Spontaneous
  Country: US (occurrence: US)
  Receive Date: 20160411
  Receipt Date: 20160411
  Transmission Date: 20160815
  Serious: No
  Sender: FDA-Public Use
  Company Number: US-BAYER-2016-065234

PATIENT
  Age: 57 Year
  Sex: Male

DRUGS (2)
  1. GADAVIST [Suspect]
     Active Substance: GADOBUTROL
     Indication: NUCLEAR MAGNETIC RESONANCE IMAGING
     Dosage: 8 ML, UNK
     Route: 017
     Dates: start: 20160405, end: 20160405
  2. GADAVIST [Suspect]
     Active Substance: GADOBUTROL
     Indication: SKIN LESION

REACTIONS (2)
  - Product use issue [None]
  - Urticaria [None]

NARRATIVE: CASE EVENT DATE: 20160405
